FAERS Safety Report 12711282 (Version 3)
Quarter: 2016Q4

REPORT INFORMATION
  Report Type: Spontaneous
  Country: US (occurrence: US)
  Receive Date: 20160902
  Receipt Date: 20161206
  Transmission Date: 20170207
  Serious: Yes (Hospitalization)
  Sender: FDA-Public Use
  Company Number: US-PFIZER INC-2016409121

PATIENT
  Age: 82 Year
  Sex: Female

DRUGS (2)
  1. REVATIO [Suspect]
     Active Substance: SILDENAFIL CITRATE
     Indication: LUNG DISORDER
     Dosage: 60 MG, DAILY ((3) 20 MG A DAY)
  2. REVATIO [Suspect]
     Active Substance: SILDENAFIL CITRATE
     Indication: CHRONIC OBSTRUCTIVE PULMONARY DISEASE

REACTIONS (5)
  - Blood count abnormal [Unknown]
  - Gastrointestinal haemorrhage [Unknown]
  - Product use issue [Unknown]
  - Musculoskeletal disorder [Unknown]
  - Cardiac disorder [Unknown]
